FAERS Safety Report 16519359 (Version 1)
Quarter: 2019Q3

REPORT INFORMATION
  Report Type: Spontaneous
  Country: FR (occurrence: FR)
  Receive Date: 20190702
  Receipt Date: 20190702
  Transmission Date: 20191004
  Serious: Yes (Hospitalization)
  Sender: FDA-Public Use
  Company Number: FR-MYLANLABS-2019M1061464

PATIENT
  Age: 81 Year
  Sex: Male
  Weight: 104 kg

DRUGS (2)
  1. AMOXICILLINE                       /00249601/ [Suspect]
     Active Substance: AMOXICILLIN
     Indication: SEPSIS
     Dosage: CF COMMENTAIRES
     Route: 041
     Dates: start: 20181128, end: 20181205
  2. FUROSEMIDE. [Suspect]
     Active Substance: FUROSEMIDE
     Indication: HYPERTENSION
     Dosage: 40 MILLIGRAM, QD
     Route: 048

REACTIONS (1)
  - Renal tubular disorder [Recovering/Resolving]

NARRATIVE: CASE EVENT DATE: 20181109
